FAERS Safety Report 23083206 (Version 1)
Quarter: 2023Q4

REPORT INFORMATION
  Report Type: Report from Study
  Country: US (occurrence: US)
  Receive Date: 20231019
  Receipt Date: 20231019
  Transmission Date: 20240110
  Serious: No
  Sender: FDA-Public Use
  Company Number: US-MIRM-000392

PATIENT
  Sex: Male

DRUGS (2)
  1. LIVMARLI [Suspect]
     Active Substance: MARALIXIBAT CHLORIDE
     Indication: Product used for unknown indication
     Dosage: 0.45 MILLILITER
     Route: 048
  2. LIVMARLI [Suspect]
     Active Substance: MARALIXIBAT CHLORIDE
     Dosage: UNK
     Route: 048
     Dates: start: 202112

REACTIONS (8)
  - Bile acids increased [Unknown]
  - Pruritus [Not Recovered/Not Resolved]
  - Scratch [Unknown]
  - Haemorrhage [Unknown]
  - Xanthoma [Unknown]
  - Liver function test abnormal [Unknown]
  - Wound [Not Recovered/Not Resolved]
  - Drug ineffective [Unknown]
